FAERS Safety Report 6581540-6 (Version None)
Quarter: 2010Q1

REPORT INFORMATION
  Report Type: 
  Country: None (occurrence: None)
  Receive Date: 20100215
  Receipt Date: 20100204
  Transmission Date: 20100710
  Serious: Yes (Hospitalization)
  Sender: FDA-Public Use
  Company Number: AU-MERCK-1002USA00691

PATIENT
  Age: 75 Year
  Sex: Female
  Weight: 77 kg

DRUGS (9)
  1. ZOCOR [Suspect]
     Indication: METABOLIC DISORDER
     Route: 048
     Dates: end: 20090611
  2. CLARITHROMYCIN [Concomitant]
     Indication: COLLAPSE OF LUNG
     Route: 048
     Dates: start: 20090528, end: 20090610
  3. ASPIRIN [Concomitant]
     Indication: TRANSIENT ISCHAEMIC ATTACK
     Route: 065
  4. CALTRATE [Concomitant]
     Indication: HYPOVITAMINOSIS
     Route: 065
  5. FELODIPINE [Concomitant]
     Indication: ESSENTIAL HYPERTENSION
     Route: 065
  6. OMEGA-3 MARINE TRIGLYCERIDES [Concomitant]
     Indication: ARTHRITIS
     Route: 065
  7. INDERAL [Concomitant]
     Indication: MIGRAINE
     Route: 065
  8. PANAMAX [Concomitant]
     Indication: PAIN
     Route: 065
  9. SANDOMIGRAN [Concomitant]
     Indication: MIGRAINE
     Route: 065

REACTIONS (2)
  - DRUG INTERACTION [None]
  - RHABDOMYOLYSIS [None]
